FAERS Safety Report 5569085-3 (Version None)
Quarter: 2007Q4

REPORT INFORMATION
  Report Type: 
  Country: None (occurrence: None)
  Receive Date: 20071220
  Receipt Date: 20070821
  Transmission Date: 20080405
  Serious: No
  Sender: FDA-Public Use
  Company Number: A0661365A

PATIENT
  Age: 88 Year
  Sex: Male

DRUGS (1)
  1. AVODART [Suspect]
     Dosage: 20CAP CUMULATIVE DOSE
     Route: 048
     Dates: start: 20070602, end: 20070601

REACTIONS (2)
  - PRURITUS [None]
  - RASH [None]
